FAERS Safety Report 7114129-0 (Version None)
Quarter: 2010Q4

REPORT INFORMATION
  Report Type: 
  Country: None (occurrence: None)
  Receive Date: 20101119
  Receipt Date: 20101117
  Transmission Date: 20110411
  Serious: No
  Sender: FDA-Public Use
  Company Number: US-B.I. PHARMACEUTICALS,INC./RIDGEFIELD-2010-BP-11664BP

PATIENT
  Sex: Female

DRUGS (8)
  1. SPIRIVA [Suspect]
     Indication: ASTHMA
     Dosage: 18 MCG
     Route: 055
     Dates: start: 20100701, end: 20100701
  2. SPIRIVA [Suspect]
     Indication: CHRONIC OBSTRUCTIVE PULMONARY DISEASE
  3. LEXAPRO [Concomitant]
  4. PREDNISONE [Concomitant]
  5. AGGRENOX [Concomitant]
  6. TOPAMAX [Concomitant]
  7. XOLAIR [Concomitant]
     Dosage: 1INJ 1XMONTH
  8. ADVAIR DISKUS 100/50 [Concomitant]
     Dosage: 250/50 BID

REACTIONS (4)
  - DIZZINESS [None]
  - ERYTHEMA [None]
  - FLUSHING [None]
  - HEART RATE INCREASED [None]
